FAERS Safety Report 24532623 (Version 1)
Quarter: 2024Q4

REPORT INFORMATION
  Report Type: Spontaneous
  Country: PL (occurrence: PL)
  Receive Date: 20241022
  Receipt Date: 20241022
  Transmission Date: 20250115
  Serious: Yes (Life-Threatening, Other)
  Sender: SANOFI AVENTIS
  Company Number: PL-SA-2024SA301275

PATIENT
  Age: 32 Year
  Sex: Male

DRUGS (1)
  1. FABRAZYME [Suspect]
     Active Substance: AGALSIDASE BETA
     Indication: Fabry^s disease
     Dosage: 1 MG/KG, QOW
     Route: 042

REACTIONS (1)
  - Ischaemic stroke [Recovering/Resolving]

NARRATIVE: CASE EVENT DATE: 20241014
